FAERS Safety Report 17967485 (Version 1)
Quarter: 2020Q3

REPORT INFORMATION
  Report Type: Report from Study
  Country: BE (occurrence: BE)
  Receive Date: 20200701
  Receipt Date: 20200701
  Transmission Date: 20201103
  Serious: Yes (Hospitalization, Other)
  Sender: FDA-Public Use
  Company Number: BE-ACCORD-187457

PATIENT
  Age: 70 Year
  Sex: Female
  Weight: 77.9 kg

DRUGS (19)
  1. PANTOMED [Concomitant]
     Indication: PRODUCT USED FOR UNKNOWN INDICATION
     Dosage: 40 MG, QD
     Route: 048
     Dates: start: 2016
  2. ZANIDIP [Concomitant]
     Active Substance: LERCANIDIPINE HYDROCHLORIDE
     Indication: BLOOD PRESSURE ABNORMAL
     Dosage: 5 MG, QD
     Route: 048
  3. CARBOPLATIN. [Suspect]
     Active Substance: CARBOPLATIN
     Indication: OVARIAN CANCER
     Dosage: 720.95 MG, TIW
     Route: 042
     Dates: start: 20160426, end: 20160913
  4. CETIRIZINE [Concomitant]
     Active Substance: CETIRIZINE HYDROCHLORIDE
     Indication: PROPHYLAXIS
     Dosage: UNK
     Route: 065
     Dates: start: 2016
  5. FLAGYL [Concomitant]
     Active Substance: METRONIDAZOLE\METRONIDAZOLE HYDROCHLORIDE
     Indication: BACTERIAL INFECTION
     Dosage: UNK
     Route: 065
     Dates: start: 20161001
  6. CARBOPLATIN. [Suspect]
     Active Substance: CARBOPLATIN
     Indication: OVARIAN CANCER
     Dosage: 720.95 MG, TIW
     Route: 042
     Dates: start: 20160913, end: 20160913
  7. BEVACIZUMAB. [Suspect]
     Active Substance: BEVACIZUMAB
     Indication: OVARIAN CANCER
     Dosage: 15 MG/KG, TIW
     Route: 042
     Dates: start: 20160913
  8. PERINDOPRIL [Concomitant]
     Active Substance: PERINDOPRIL
     Indication: BLOOD PRESSURE ABNORMAL
     Dosage: 5 MG, QD
     Route: 048
     Dates: start: 20161005
  9. DEXAMETHASONE. [Concomitant]
     Active Substance: DEXAMETHASONE
     Indication: PROPHYLAXIS
     Dosage: UNK
     Route: 065
     Dates: start: 2016
  10. PACLITAXEL/PACLITAXEL LIPOSOME [Suspect]
     Active Substance: PACLITAXEL
     Indication: OVARIAN CANCER
     Dosage: 1 UNK, TIW
     Route: 042
     Dates: start: 20160913, end: 20160913
  11. TRADONAL [Concomitant]
     Active Substance: TRAMADOL HYDROCHLORIDE
     Indication: PRODUCT USED FOR UNKNOWN INDICATION
     Dosage: UNK
     Route: 065
  12. MOXONIDINE [Concomitant]
     Active Substance: MOXONIDINE
     Indication: PRODUCT USED FOR UNKNOWN INDICATION
     Dosage: UNK
     Route: 065
     Dates: start: 201612
  13. LITICAN [Concomitant]
     Active Substance: ALIZAPRIDE HYDROCHLORIDE
     Indication: PRODUCT USED FOR UNKNOWN INDICATION
     Dosage: UNK
     Route: 065
     Dates: start: 201605
  14. PACLITAXEL/PACLITAXEL LIPOSOME [Suspect]
     Active Substance: PACLITAXEL
     Indication: OVARIAN CANCER
     Dosage: 311.5 MG, TIW
     Route: 042
     Dates: start: 20190426
  15. NOBITEN [Concomitant]
     Active Substance: NEBIVOLOL
     Indication: HYPERTENSION
     Dates: start: 20160929
  16. TAZOCIN [Concomitant]
     Active Substance: PIPERACILLIN SODIUM\TAZOBACTAM SODIUM
     Indication: BACTERIAL INFECTION
     Dosage: UNK
     Route: 065
     Dates: start: 20160929
  17. NOBITEN [Concomitant]
     Active Substance: NEBIVOLOL
     Indication: HYPERTENSION
     Dosage: 5 MG, QD
     Route: 048
     Dates: start: 20161005
  18. DAFALGAN [Concomitant]
     Active Substance: ACETAMINOPHEN
     Indication: PRODUCT USED FOR UNKNOWN INDICATION
     Dosage: UNK
     Route: 065
     Dates: start: 2016
  19. FLAGYL [Concomitant]
     Active Substance: METRONIDAZOLE\METRONIDAZOLE HYDROCHLORIDE
     Indication: BACTERIAL INFECTION
     Dosage: UNK
     Route: 065
     Dates: start: 20160929

REACTIONS (11)
  - Polyneuropathy [Not Recovered/Not Resolved]
  - Mastoiditis [Recovered/Resolved]
  - Nausea [Not Recovered/Not Resolved]
  - Infected lymphocele [Recovered/Resolved]
  - Constipation [Not Recovered/Not Resolved]
  - Arthralgia [Not Recovered/Not Resolved]
  - Dyspnoea [Not Recovered/Not Resolved]
  - Meningitis [Recovered/Resolved]
  - Fatigue [Not Recovered/Not Resolved]
  - Hypertension [Not Recovered/Not Resolved]
  - Intervertebral disc protrusion [Not Recovered/Not Resolved]

NARRATIVE: CASE EVENT DATE: 20160426
